FAERS Safety Report 18906266 (Version 1)
Quarter: 2021Q1

REPORT INFORMATION
  Report Type: Report from Study
  Country: None (occurrence: US)
  Receive Date: 20210217
  Receipt Date: 20210217
  Transmission Date: 20210420
  Serious: Yes (Other)
  Sender: FDA-Public Use
  Company Number: US-ABBVIE-21K-163-3777873-00

PATIENT
  Sex: Female

DRUGS (6)
  1. IMBRUVICA [Suspect]
     Active Substance: IBRUTINIB
     Dosage: ALTERNATING WITH 280MG EVERY OTHER
     Route: 048
     Dates: end: 20210126
  2. IMBRUVICA [Suspect]
     Active Substance: IBRUTINIB
     Route: 048
     Dates: end: 20200902
  3. IMBRUVICA [Suspect]
     Active Substance: IBRUTINIB
     Dosage: ALTERNATING WITH 280MG EVERY OTHER
     Route: 048
     Dates: end: 20210126
  4. IMBRUVICA [Suspect]
     Active Substance: IBRUTINIB
     Indication: CHRONIC LYMPHOCYTIC LEUKAEMIA
     Route: 048
     Dates: start: 20170731
  5. IMBRUVICA [Suspect]
     Active Substance: IBRUTINIB
     Route: 048
  6. IMBRUVICA [Suspect]
     Active Substance: IBRUTINIB
     Route: 048
     Dates: start: 20191217, end: 20200420

REACTIONS (1)
  - Shoulder operation [Unknown]
